FAERS Safety Report 5684192-2 (Version None)
Quarter: 2008Q1

REPORT INFORMATION
  Report Type: 
  Country: None (occurrence: None)
  Receive Date: 20080327
  Receipt Date: 20080327
  Transmission Date: 20080703
  Serious: Yes (Hospitalization)
  Sender: FDA-Public Use
  Company Number: None

PATIENT
  Age: 63 Year
  Sex: Female
  Weight: 66.6788 kg

DRUGS (1)
  1. PLAVIX [Suspect]
     Indication: THROMBOSIS PROPHYLAXIS
     Dosage: ONCE DAILY
     Dates: start: 20071105, end: 20071124

REACTIONS (4)
  - DIZZINESS [None]
  - HIP FRACTURE [None]
  - LOSS OF CONSCIOUSNESS [None]
  - URTICARIA [None]
